FAERS Safety Report 11096589 (Version 2)
Quarter: 2017Q4

REPORT INFORMATION
  Report Type: Spontaneous
  Country: US (occurrence: US)
  Receive Date: 20150507
  Receipt Date: 20171121
  Transmission Date: 20180320
  Serious: No
  Sender: FDA-Public Use
  Company Number: US-BAYER-2015-180954

PATIENT
  Age: 69 Year
  Sex: Female
  Weight: 118 kg

DRUGS (2)
  1. MIRALAX [Suspect]
     Active Substance: POLYETHYLENE GLYCOL 3350
     Indication: GASTROINTESTINAL DISORDER
  2. MIRALAX [Suspect]
     Active Substance: POLYETHYLENE GLYCOL 3350
     Indication: CONSTIPATION
     Dosage: 1 DF, BID
     Route: 048
     Dates: start: 2008

REACTIONS (4)
  - Poor quality drug administered [Unknown]
  - Off label use [Unknown]
  - Incorrect drug administration duration [Unknown]
  - Inappropriate schedule of drug administration [None]

NARRATIVE: CASE EVENT DATE: 2008
